FAERS Safety Report 6003143-4 (Version None)
Quarter: 2008Q4

REPORT INFORMATION
  Report Type: 
  Country: None (occurrence: None)
  Receive Date: 20081216
  Receipt Date: 20081205
  Transmission Date: 20090506
  Serious: Yes (Death)
  Sender: FDA-Public Use
  Company Number: CN-JNJFOC-20081201953

PATIENT
  Age: 2 Year
  Sex: Male
  Weight: 11.5 kg

DRUGS (8)
  1. TYLENOL (CAPLET) [Suspect]
  2. TYLENOL (CAPLET) [Suspect]
     Indication: PYREXIA
  3. TYLENOL (CAPLET) [Suspect]
  4. TYLENOL (CAPLET) [Suspect]
     Indication: PYREXIA
  5. UNSPECIFIED ANTIPYRETIC [Concomitant]
     Indication: PYREXIA
     Route: 054
  6. OMEPRAZOLE SODIUM [Concomitant]
     Route: 042
  7. CEFUROXIME SODIUM [Concomitant]
     Indication: ANTIBIOTIC THERAPY
     Route: 042
  8. UNSPECIFIED MEDICATION [Concomitant]

REACTIONS (2)
  - GASTRIC HAEMORRHAGE [None]
  - MULTI-ORGAN FAILURE [None]
